FAERS Safety Report 10221101 (Version 1)
Quarter: 2014Q2

REPORT INFORMATION
  Report Type: Spontaneous
  Country: US (occurrence: None)
  Receive Date: 20140604
  Receipt Date: 20140604
  Transmission Date: 20141212
  Serious: Yes (Other)
  Sender: FDA-Public Use
  Company Number: 201405126

PATIENT
  Sex: Male

DRUGS (1)
  1. TESTOPEL [Suspect]
     Indication: PRODUCT USED FOR UNKNOWN INDICATION
     Dosage: PELLETS, SUBERMAL
     Route: 059

REACTIONS (5)
  - Purulent discharge [None]
  - Implant site reaction [None]
  - Implant site discharge [None]
  - Scar [None]
  - Surgical procedure repeated [None]
